FAERS Safety Report 10948585 (Version 1)
Quarter: 2015Q1

REPORT INFORMATION
  Report Type: Spontaneous
  Country: US (occurrence: None)
  Receive Date: 20150220
  Receipt Date: 20150220
  Transmission Date: 20150721
  Serious: No
  Sender: FDA-Public Use
  Company Number: 1000071911

PATIENT
  Age: 83 Year
  Sex: Male

DRUGS (2)
  1. TUDORZA PRESSAIR [Suspect]
     Active Substance: ACLIDINIUM BROMIDE
     Indication: CHRONIC OBSTRUCTIVE PULMONARY DISEASE
     Dates: start: 201410, end: 20141024
  2. TAMSULOSIN (TAMSULOSIN) [Concomitant]
     Active Substance: TAMSULOSIN

REACTIONS (7)
  - Dyspnoea [None]
  - Lip swelling [None]
  - Dysuria [None]
  - Visual impairment [None]
  - Productive cough [None]
  - Muscle spasms [None]
  - Vision blurred [None]

NARRATIVE: CASE EVENT DATE: 201410
